FAERS Safety Report 8776205 (Version 5)
Quarter: 2013Q2

REPORT INFORMATION
  Report Type: Report from Study
  Country: US (occurrence: US)
  Receive Date: 20120910
  Receipt Date: 20130610
  Transmission Date: 20140414
  Serious: Yes (Hospitalization)
  Sender: FDA-Public Use
  Company Number: US-PFIZER INC-2012214216

PATIENT
  Age: 16 Year
  Sex: Female
  Weight: 56.51 kg

DRUGS (3)
  1. VARENICLINE TARTRATE [Suspect]
     Indication: SMOKING CESSATION THERAPY
     Dosage: UNK, 2X/DAY
     Route: 048
     Dates: start: 20120808, end: 20120816
  2. EXCEDRIN [Concomitant]
     Indication: MIGRAINE
     Dosage: 2 TABLETS, AS NEEDED
     Route: 048
     Dates: start: 2008
  3. PROMETHAZINE [Concomitant]
     Indication: NAUSEA
     Dosage: 25 MG, SGL DOSE
     Route: 048
     Dates: start: 20120809, end: 20120809

REACTIONS (1)
  - Adjustment disorder with mixed disturbance of emotion and conduct [Recovered/Resolved]
